FAERS Safety Report 8068463-0 (Version None)
Quarter: 2012Q1

REPORT INFORMATION
  Report Type: 
  Country: None (occurrence: None)
  Receive Date: 20120124
  Receipt Date: 20111027
  Transmission Date: 20120608
  Serious: No
  Sender: FDA-Public Use
  Company Number: US-AMGEN-USASP2011055925

PATIENT
  Age: 75 Year
  Sex: Female

DRUGS (4)
  1. PROLIA [Suspect]
     Dates: start: 20110928
  2. SPIRIVA [Concomitant]
  3. PROLIA [Suspect]
     Indication: OSTEOPOROSIS POSTMENOPAUSAL
     Dosage: 60 MG, Q6MO
     Dates: start: 20110929
  4. SYMBICORT [Concomitant]

REACTIONS (7)
  - OEDEMA PERIPHERAL [None]
  - FEELING HOT [None]
  - ERYTHEMA [None]
  - JOINT SWELLING [None]
  - ARTHRALGIA [None]
  - CELLULITIS [None]
  - MUSCLE TIGHTNESS [None]
